FAERS Safety Report 17398912 (Version 3)
Quarter: 2020Q2

REPORT INFORMATION
  Report Type: Report from Study
  Country: CA (occurrence: CA)
  Receive Date: 20200210
  Receipt Date: 20200522
  Transmission Date: 20200713
  Serious: Yes (Other)
  Sender: FDA-Public Use
  Company Number: CA-NALPROPION PHARMACEUTICALS INC.-2020-009563

PATIENT

DRUGS (2)
  1. CONTRAVE [Suspect]
     Active Substance: BUPROPION HYDROCHLORIDE\NALTREXONE HYDROCHLORIDE
     Indication: WEIGHT CONTROL
     Dosage: IN THE MORNING (90 MG/8 MG) (1 DOSAGE FORMS, 1 IN 1 D)
     Route: 048
     Dates: start: 20200126, end: 20200130
  2. METFORMIN [Concomitant]
     Active Substance: METFORMIN HYDROCHLORIDE
     Indication: HORMONE LEVEL ABNORMAL
     Dosage: 500 MG, 2 IN 1 D
     Route: 048

REACTIONS (12)
  - Malaise [Unknown]
  - Hot flush [Recovered/Resolved]
  - Palpitations [Recovered/Resolved]
  - Hunger [Recovered/Resolved]
  - Dizziness [Recovered/Resolved]
  - Vomiting [Recovered/Resolved]
  - Feeding disorder [Recovered/Resolved]
  - Heart rate increased [Unknown]
  - Headache [Recovered/Resolved]
  - Haematemesis [Unknown]
  - Nausea [Recovered/Resolved]
  - Tremor [Recovered/Resolved]

NARRATIVE: CASE EVENT DATE: 202001
